FAERS Safety Report 15285502 (Version 1)
Quarter: 2018Q3

REPORT INFORMATION
  Report Type: Spontaneous
  Country: RU (occurrence: RU)
  Receive Date: 20180816
  Receipt Date: 20180816
  Transmission Date: 20181010
  Serious: Yes (Other)
  Sender: FDA-Public Use
  Company Number: RU-MERCK KGAA-2053826

PATIENT

DRUGS (1)
  1. NOVOTHYROX [Suspect]
     Active Substance: LEVOTHYROXINE SODIUM
     Indication: POST PROCEDURAL HYPOTHYROIDISM

REACTIONS (18)
  - Panic attack [None]
  - Disturbance in attention [None]
  - Body temperature abnormal [None]
  - Memory impairment [None]
  - Asthenia [None]
  - Anxiety [None]
  - Pyrexia [None]
  - Depression [None]
  - Somnolence [None]
  - Fatigue [None]
  - Dyspnoea [None]
  - Thyroxine increased [None]
  - Chest pain [None]
  - Choking [None]
  - Temperature intolerance [None]
  - Fear [None]
  - Hyperhidrosis [None]
  - Nervousness [None]
